FAERS Safety Report 11091503 (Version 1)
Quarter: 2015Q2

REPORT INFORMATION
  Report Type: Spontaneous
  Country: US (occurrence: US)
  Receive Date: 20150505
  Receipt Date: 20150505
  Transmission Date: 20150821
  Serious: Yes (Other)
  Sender: FDA-Public Use
  Company Number: US-BAUSCH-BL-2015-012304

PATIENT
  Age: 57 Year
  Sex: Female

DRUGS (2)
  1. CYCLOSPORINE. [Concomitant]
     Active Substance: CYCLOSPORINE
     Indication: UVEITIS
  2. RETISERT [Suspect]
     Active Substance: FLUOCINOLONE ACETONIDE
     Indication: UVEITIS

REACTIONS (4)
  - Chorioretinal folds [Unknown]
  - Uveitis [Unknown]
  - Hypotony of eye [Unknown]
  - Maculopathy [Unknown]
